FAERS Safety Report 16873823 (Version 1)
Quarter: 2019Q4

REPORT INFORMATION
  Report Type: Report from Study
  Country: CA (occurrence: CA)
  Receive Date: 20191001
  Receipt Date: 20191001
  Transmission Date: 20200122
  Serious: Yes (Other)
  Sender: FDA-Public Use
  Company Number: CA-PFIZER INC-2019417736

PATIENT
  Age: 63 Year
  Sex: Female
  Weight: 61 kg

DRUGS (12)
  1. AVASTIN [Suspect]
     Active Substance: BEVACIZUMAB
     Dosage: UNK
     Route: 042
  2. NAPROXEN. [Concomitant]
     Active Substance: NAPROXEN
     Dosage: UNK
     Route: 065
  3. PROPANOLOL HCL [Suspect]
     Active Substance: PROPRANOLOL HYDROCHLORIDE
     Dosage: UNK
     Route: 065
  4. AVASTIN [Suspect]
     Active Substance: BEVACIZUMAB
     Indication: OVARIAN CANCER STAGE III
     Dosage: UNK
     Route: 042
  5. AVASTIN [Suspect]
     Active Substance: BEVACIZUMAB
     Dosage: 915 MG, 1 EVERY 3 WEEK(S)]
     Route: 042
  6. DEXAMETHASONE. [Concomitant]
     Active Substance: DEXAMETHASONE
     Dosage: UNK
  7. AVASTIN [Suspect]
     Active Substance: BEVACIZUMAB
     Dosage: 900 MG, 1 EVERY 3 WEEK(S)]
     Route: 042
  8. PROPANOLOL HCL [Suspect]
     Active Substance: PROPRANOLOL HYDROCHLORIDE
     Indication: HYPERTENSION
     Dosage: 1 EVERY DAY
     Route: 065
  9. AVASTIN [Suspect]
     Active Substance: BEVACIZUMAB
     Dosage: 975 MG, 1 EVERY 3 WEEK(S) ]
     Route: 042
  10. TAXOL [Suspect]
     Active Substance: PACLITAXEL
     Dosage: UNK
     Route: 065
  11. METOCLOPRAMIDE HYDROCHLORIDE. [Concomitant]
     Active Substance: METOCLOPRAMIDE HYDROCHLORIDE
     Dosage: UNK
     Route: 065
  12. ZOFRAN [Suspect]
     Active Substance: ONDANSETRON HYDROCHLORIDE
     Indication: VOMITING
     Dosage: UNK
     Route: 065

REACTIONS (28)
  - Abdominal pain [Not Recovered/Not Resolved]
  - Dyspepsia [Not Recovered/Not Resolved]
  - Sinus congestion [Not Recovered/Not Resolved]
  - Lower respiratory tract infection [Not Recovered/Not Resolved]
  - Upper respiratory tract infection [Not Recovered/Not Resolved]
  - Headache [Not Recovered/Not Resolved]
  - Constipation [Not Recovered/Not Resolved]
  - Dyspnoea [Not Recovered/Not Resolved]
  - Upper respiratory tract congestion [Not Recovered/Not Resolved]
  - Blood pressure increased [Not Recovered/Not Resolved]
  - Blood pressure systolic increased [Not Recovered/Not Resolved]
  - Hordeolum [Not Recovered/Not Resolved]
  - Oral herpes [Not Recovered/Not Resolved]
  - Nausea [Not Recovered/Not Resolved]
  - Pain [Not Recovered/Not Resolved]
  - Hypertension [Not Recovered/Not Resolved]
  - Fatigue [Not Recovered/Not Resolved]
  - Nasopharyngitis [Not Recovered/Not Resolved]
  - Oropharyngeal pain [Not Recovered/Not Resolved]
  - Weight fluctuation [Not Recovered/Not Resolved]
  - Drug ineffective [Not Recovered/Not Resolved]
  - Cough [Not Recovered/Not Resolved]
  - Epistaxis [Not Recovered/Not Resolved]
  - Asthenia [Not Recovered/Not Resolved]
  - Hypotension [Not Recovered/Not Resolved]
  - Cellulitis [Not Recovered/Not Resolved]
  - Eye infection [Not Recovered/Not Resolved]
  - Rhinorrhoea [Not Recovered/Not Resolved]
